FAERS Safety Report 4950207-X (Version None)
Quarter: 2006Q1

REPORT INFORMATION
  Report Type: 
  Country: None (occurrence: None)
  Receive Date: 20060316
  Receipt Date: 20060306
  Transmission Date: 20060701
  Serious: Yes (Hospitalization)
  Sender: FDA-Public Use
  Company Number: 2006028670

PATIENT
  Age: 70 Year
  Sex: Female

DRUGS (8)
  1. NORVASC [Suspect]
     Indication: ILL-DEFINED DISORDER
     Dosage: 5 MG ORAL
     Route: 048
     Dates: start: 20051101, end: 20060201
  2. MUCOSTA (REBAMIPIDE) [Suspect]
     Indication: ILL-DEFINED DISORDER
     Dosage: ORAL
     Route: 048
     Dates: start: 20050801, end: 20060201
  3. BLOPRESS (CANDESARTAN CILEXETIL) [Suspect]
     Indication: ILL-DEFINED DISORDER
     Dosage: ORAL
     Route: 048
  4. ISOSORBIDE MONONITRATE [Concomitant]
  5. PRAVASTATIN [Concomitant]
  6. ASPIRIN [Concomitant]
  7. LIPIDIL [Concomitant]
  8. SIGMART (NICORANDIL) [Concomitant]

REACTIONS (1)
  - INTERSTITIAL LUNG DISEASE [None]
